FAERS Safety Report 8889252 (Version 1)
Quarter: 2012Q4

REPORT INFORMATION
  Report Type: Report from Study
  Country: US (occurrence: US)
  Receive Date: 20121106
  Receipt Date: 20121106
  Transmission Date: 20130627
  Serious: Yes (Hospitalization)
  Sender: FDA-Public Use
  Company Number: US-ROCHE-1151817

PATIENT
  Sex: Male
  Weight: 68.55 kg

DRUGS (16)
  1. CAPECITABINE [Suspect]
     Indication: PANCREATIC CARCINOMA
     Route: 048
     Dates: start: 20120413, end: 20121017
  2. ELOXATIN [Suspect]
     Indication: PANCREATIC CARCINOMA
     Route: 042
     Dates: start: 20120430, end: 20121017
  3. LISINOPRIL [Concomitant]
     Indication: HYPERTENSION
     Route: 048
  4. JANUMET [Concomitant]
     Indication: TYPE 2 DIABETES MELLITUS
     Dosage: 50-500
     Route: 048
  5. FLOMAX [Concomitant]
     Indication: BENIGN PROSTATIC HYPERPLASIA
     Route: 048
  6. MS CONTIN [Concomitant]
     Indication: PAIN
     Route: 048
  7. AMIODARONE [Concomitant]
     Route: 048
  8. AMLODIPINE [Concomitant]
     Route: 048
  9. ATORVASTATIN [Concomitant]
     Route: 048
  10. COMPAZINE [Concomitant]
     Route: 048
  11. HYDROCODONE/ACETAMINOPHEN [Concomitant]
     Dosage: 5mg-325mg
     Route: 048
  12. INSULIN REGULAR HUMAN [Concomitant]
     Dosage: 100 unit/mL
     Route: 065
  13. LANTUS [Concomitant]
     Dosage: 100 unit/mL 15 units as directed
     Route: 058
  14. MSIR [Concomitant]
     Indication: PAIN
     Dosage: 1-2 DF
     Route: 048
  15. PROMETHAZINE [Concomitant]
     Route: 048
  16. REGLAN [Concomitant]
     Route: 048

REACTIONS (4)
  - Disease progression [Unknown]
  - Ketoacidosis [Recovered/Resolved]
  - Palmar-plantar erythrodysaesthesia syndrome [Recovering/Resolving]
  - Atrial fibrillation [Recovered/Resolved]
